FAERS Safety Report 4480651-9 (Version None)
Quarter: 2004Q4

REPORT INFORMATION
  Report Type: 
  Country: None (occurrence: None)
  Receive Date: 20041019
  Receipt Date: 20041008
  Transmission Date: 20050328
  Serious: Yes (Life-Threatening)
  Sender: FDA-Public Use
  Company Number: 8991

PATIENT
  Age: 7 Year
  Sex: Male

DRUGS (5)
  1. METHOTREXATE [Suspect]
     Indication: PROPHYLAXIS AGAINST TRANSPLANT REJECTION
  2. MYLERAN [Suspect]
  3. CYCLOPHOSPHAMIDE [Concomitant]
  4. ANTITHYMOCYTE GLOBULIN [Concomitant]
  5. TACROLIMUS [Concomitant]

REACTIONS (9)
  - CELL-MEDIATED IMMUNE DEFICIENCY [None]
  - FACE OEDEMA [None]
  - IMMUNODEFICIENCY [None]
  - LYMPHOPROLIFERATIVE DISORDER [None]
  - PYREXIA [None]
  - SINUS DISORDER [None]
  - SINUSITIS [None]
  - VIRAL DNA TEST POSITIVE [None]
  - WHITE BLOOD CELL COUNT DECREASED [None]
